FAERS Safety Report 25189154 (Version 1)
Quarter: 2025Q2

REPORT INFORMATION
  Report Type: Spontaneous
  Country: US (occurrence: US)
  Receive Date: 20250411
  Receipt Date: 20250411
  Transmission Date: 20250716
  Serious: Yes (Hospitalization, Other)
  Sender: STRIDES
  Company Number: US-STRIDES ARCOLAB LIMITED-2025SP004513

PATIENT
  Age: 60 Year
  Sex: Male

DRUGS (1)
  1. AZITHROMYCIN [Suspect]
     Active Substance: AZITHROMYCIN
     Indication: Legionella infection
     Route: 065

REACTIONS (4)
  - Leukocytosis [Unknown]
  - Condition aggravated [Unknown]
  - Pancreatitis bacterial [Unknown]
  - Drug ineffective [Unknown]
